FAERS Safety Report 9997581 (Version 1)
Quarter: 2014Q1

REPORT INFORMATION
  Report Type: Spontaneous
  Country: US (occurrence: None)
  Receive Date: 20140225
  Receipt Date: 20140225
  Transmission Date: 20141002
  Serious: Yes (Other)
  Sender: FDA-Public Use
  Company Number: 2013-360

PATIENT
  Age: 60 Year
  Sex: Female

DRUGS (7)
  1. PRIALT (ZICONOTIDE) INTRATHECAL INFUSION [Suspect]
     Indication: PAIN
     Dosage: ONCE/HOUR
     Route: 037
     Dates: start: 201306
  2. MORPHINE SULFATE (MORPHINE SULFATE) INJECTION [Suspect]
     Indication: PAIN
     Dosage: ONCE/HOUR
     Route: 037
  3. PRAVACHOL (PRAVASTATIN SODIUM) [Concomitant]
  4. METOPROLOL (METOPROLOL TARTRATE) [Concomitant]
  5. WELLBUTRIN (BUPROPION HYDROCHLORIDE) [Concomitant]
  6. GABAPENTIN (GABAPENTIN) [Concomitant]
  7. LASIX (FUROSEMIDE) [Concomitant]

REACTIONS (3)
  - Overdose [None]
  - Mucous stools [None]
  - Constipation [None]
